FAERS Safety Report 22344030 (Version 1)
Quarter: 2023Q2

REPORT INFORMATION
  Report Type: Spontaneous
  Country: US (occurrence: US)
  Receive Date: 20230519
  Receipt Date: 20230519
  Transmission Date: 20230722
  Serious: No
  Sender: FDA-Public Use
  Company Number: US-009507513-2305USA005601

PATIENT
  Sex: Female

DRUGS (1)
  1. KEYTRUDA [Suspect]
     Active Substance: PEMBROLIZUMAB
     Indication: Triple negative breast cancer
     Dosage: 200 MILLIGRAM, EVERY 21 DAYS (Q3W), NEOADJUVANT TREATMENT FOR CYCLES 1-4 AND CYCLES 5-8
     Route: 042

REACTIONS (1)
  - Tumour excision [Unknown]

NARRATIVE: CASE EVENT DATE: 20221101
